FAERS Safety Report 17325215 (Version 8)
Quarter: 2020Q3

REPORT INFORMATION
  Report Type: Spontaneous
  Country: US (occurrence: US)
  Receive Date: 20200127
  Receipt Date: 20200701
  Transmission Date: 20201102
  Serious: Yes (Other)
  Sender: FDA-Public Use
  Company Number: US-PFIZER INC-2020031985

PATIENT
  Age: 71 Year
  Sex: Female
  Weight: 65.76 kg

DRUGS (33)
  1. OXYBUTININ ACCORD [Concomitant]
     Indication: INCONTINENCE
     Dosage: 40 MG, DAILY
  2. OASIS TEARS [Concomitant]
     Active Substance: GLYCERIN
     Dosage: UNK
  3. PREDNISONE. [Concomitant]
     Active Substance: PREDNISONE
     Dosage: 5 MG
     Dates: start: 200202
  4. URSODIOL. [Concomitant]
     Active Substance: URSODIOL
     Indication: LIVER DISORDER
     Dosage: 300 MG, 3X/DAY
  5. SEROQUEL [Concomitant]
     Active Substance: QUETIAPINE FUMARATE
     Indication: DEPRESSION
  6. OCUVITE [ASCORBIC ACID;BETACAROTENE;COPPER;TOCOFERSOLAN;ZINC] [Concomitant]
     Dosage: UNK
  7. LACTAID [Concomitant]
     Active Substance: LACTASE
     Dosage: UNK
  8. SENOKOT?S [Concomitant]
     Active Substance: DOCUSATE SODIUM\SENNOSIDES
     Dosage: UNK, 2X/DAY
  9. ESTRING [Suspect]
     Active Substance: ESTRADIOL
     Dosage: UNK (RING PUT IN VAGINA LASTS 3MONTH)
     Route: 067
     Dates: start: 201802
  10. RAPAMUNE [Concomitant]
     Active Substance: SIROLIMUS
     Dosage: 3 MG
     Dates: start: 200302
  11. ATIVAN [Concomitant]
     Active Substance: LORAZEPAM
     Dosage: 0.5 MG, AS NEEDED. CAN TAKE UPTO 4 PER DAY)
     Dates: start: 1980
  12. ZINC CITRATE [Concomitant]
     Active Substance: ZINC CITRATE
     Dosage: UNK
  13. CEPHALEXIN AMEL [Concomitant]
     Active Substance: CEPHALEXIN
     Indication: URINARY TRACT INFECTION
     Dosage: 250 MG (LOW DOSE TO PREVENT URINARY INFECTIONS)
     Dates: start: 2018
  14. METFORMIN [Concomitant]
     Active Substance: METFORMIN HYDROCHLORIDE
     Indication: WEIGHT DECREASED
     Dosage: 500 MG, 2X/DAY
  15. ALLER?CHLOR [Concomitant]
     Active Substance: CHLORPHENIRAMINE MALEATE
     Dosage: UNK
  16. SEROQUEL [Concomitant]
     Active Substance: QUETIAPINE FUMARATE
     Indication: ANXIETY
  17. BABY ASPIRIN [Concomitant]
     Active Substance: ASPIRIN
     Dosage: UNK
  18. VITAMIN K2 [MENAQUINONE] [Concomitant]
     Active Substance: MENAQUINONE 6
     Dosage: UNK
  19. TYLENOL [Concomitant]
     Active Substance: ACETAMINOPHEN
     Dosage: UNK
  20. NYSTATIN. [Concomitant]
     Active Substance: NYSTATIN
     Indication: PROPHYLAXIS
     Dosage: UNK
  21. GLUCOSAMINE + CHONDROITIN COMPLEX [Concomitant]
     Active Substance: CHONDROITIN SULFATE (BOVINE)\GLUCOSAMINE HYDROCHLORIDE
     Dosage: UNK
  22. ESTRING [Suspect]
     Active Substance: ESTRADIOL
     Indication: URINARY TRACT INFECTION
     Dosage: UNK
     Dates: start: 2017
  23. KLOR?CON [Concomitant]
     Active Substance: POTASSIUM CHLORIDE
     Dosage: UNK
     Dates: start: 2003
  24. CALCIUM + MAGNESIUM [Concomitant]
     Active Substance: CALCIUM\MAGNESIUM
     Dosage: UNK
  25. CRANBERRY. [Concomitant]
     Active Substance: CRANBERRY
     Dosage: UNK
  26. NADOLOL. [Concomitant]
     Active Substance: NADOLOL
     Dosage: UNK (0?40 MG) (DOSAGE DETERMINED BY BLOOD PRESSURE)
     Dates: start: 2002
  27. CODEINE SULPHATE [Concomitant]
     Active Substance: CODEINE SULFATE
     Indication: PAIN
     Dosage: 15 MG (WTYLENOL, FOR EXTREME PAIN)
  28. MTHF [Concomitant]
     Indication: DYSPEPSIA
     Dosage: UNK
  29. SEROQUEL [Concomitant]
     Active Substance: QUETIAPINE FUMARATE
     Indication: SLEEP DISORDER
     Dosage: UNK  37.5 AT BED AND ANTIANXIETY DEPRESSION
  30. PANCREATIC ENZYMES [Concomitant]
     Active Substance: UNSPECIFIED INGREDIENT
     Dosage: UNK
  31. VIT.D3 [Concomitant]
     Dosage: UNK
  32. NIACIN. [Concomitant]
     Active Substance: NIACIN
     Dosage: UNK
  33. GAS?X [Concomitant]
     Active Substance: DIMETHICONE
     Dosage: UNK

REACTIONS (10)
  - Drug effective for unapproved indication [Unknown]
  - Off label use [Unknown]
  - Diarrhoea [Unknown]
  - Fatigue [Not Recovered/Not Resolved]
  - Illness [Recovered/Resolved]
  - Abdominal discomfort [Unknown]
  - Pneumonia [Unknown]
  - Product use in unapproved indication [Unknown]
  - Gastric disorder [Recovered/Resolved]
  - Nausea [Unknown]

NARRATIVE: CASE EVENT DATE: 201802
